FAERS Safety Report 6154740-7 (Version None)
Quarter: 2009Q2

REPORT INFORMATION
  Report Type: 
  Country: None (occurrence: None)
  Receive Date: 20090414
  Receipt Date: 20090409
  Transmission Date: 20091009
  Serious: Yes (Hospitalization)
  Sender: FDA-Public Use
  Company Number: B0569283A

PATIENT
  Age: 9 Year
  Sex: Female

DRUGS (1)
  1. RELENZA [Suspect]
     Dosage: 10MG PER DAY
     Route: 055
     Dates: start: 20090120, end: 20090120

REACTIONS (11)
  - ALTERED STATE OF CONSCIOUSNESS [None]
  - ENCEPHALOPATHY [None]
  - EYE MOVEMENT DISORDER [None]
  - GRAND MAL CONVULSION [None]
  - HYPERTHERMIA [None]
  - MEMORY IMPAIRMENT [None]
  - MONOPLEGIA [None]
  - NYSTAGMUS [None]
  - PAIN [None]
  - RESTLESSNESS [None]
  - VOMITING [None]
